FAERS Safety Report 4512406-0 (Version None)
Quarter: 2004Q4

REPORT INFORMATION
  Report Type: 
  Country: None (occurrence: None)
  Receive Date: 20041124
  Receipt Date: 20041112
  Transmission Date: 20050328
  Serious: Yes (Other)
  Sender: FDA-Public Use
  Company Number: 2004092799

PATIENT
  Age: 65 Year
  Sex: Male
  Weight: 90.7194 kg

DRUGS (5)
  1. NEOSPORIN PLUS PAIN [Suspect]
     Dosage: TOPICAL
     Route: 061
     Dates: end: 20041001
  2. AZITHROMYCIN [Concomitant]
  3. IRBESARTAN [Concomitant]
  4. OMEPRAZOLE [Concomitant]
  5. TOCOPHEROL CONCENTRATE CAP [Concomitant]

REACTIONS (3)
  - HAEMATOMA [None]
  - HAEMORRHAGE [None]
  - SKIN CANCER [None]
